FAERS Safety Report 8437614-8 (Version None)
Quarter: 2012Q2

REPORT INFORMATION
  Report Type: 
  Country: None (occurrence: None)
  Receive Date: 20120614
  Receipt Date: 20120419
  Transmission Date: 20120825
  Serious: Yes (Hospitalization)
  Sender: FDA-Public Use
  Company Number: US-AMGEN-USASP2012024728

PATIENT
  Age: 52 Year
  Sex: Female

DRUGS (18)
  1. CHOLESTYRAMINE [Concomitant]
  2. ADVAIR DISKUS 100/50 [Concomitant]
  3. CARVEDILOL [Concomitant]
  4. HUMALOG [Concomitant]
  5. LORAZEPAM [Concomitant]
  6. LASIX [Concomitant]
  7. ALBUTEROL [Concomitant]
  8. ALBUTEROL [Concomitant]
  9. HYDROCODONE [Concomitant]
  10. LISINOPRIL [Concomitant]
  11. ISOSORBIDE DINITRATE [Concomitant]
  12. PLAVIX [Concomitant]
  13. PROLIA [Suspect]
     Indication: OSTEOPOROSIS POSTMENOPAUSAL
     Dates: start: 20110926
  14. GABAPENTIN [Concomitant]
  15. FLUOXETINE [Concomitant]
  16. LASIX [Concomitant]
  17. ZANTAC [Concomitant]
  18. DOXEPIN [Concomitant]

REACTIONS (1)
  - ECZEMA [None]
